FAERS Safety Report 9203971 (Version 2)
Quarter: 2013Q2

REPORT INFORMATION
  Report Type: Report from Study
  Country: US (occurrence: US)
  Receive Date: 20130402
  Receipt Date: 20130418
  Transmission Date: 20140414
  Serious: Yes (Other)
  Sender: FDA-Public Use
  Company Number: US-VERTEX PHARMACEUTICALS INC.-2013-004297

PATIENT
  Age: 55 Year
  Sex: Female
  Weight: 65 kg

DRUGS (8)
  1. VX-950 (TELAPREVIR) [Suspect]
     Indication: HEPATITIS C
     Dosage: 750 MG, TID
     Route: 048
  2. RIBAVIRIN [Suspect]
     Indication: HEPATITIS C
     Dosage: 200 MG, UNK
  3. RIBAVIRIN [Suspect]
     Dosage: UNK
  4. PEGASYS [Suspect]
     Indication: HEPATITIS C
     Dosage: 180 ?G, UNK
  5. CLONIDINE [Concomitant]
  6. HCTZ/TRIAMT [Concomitant]
     Dosage: 25-37.5
  7. ALPRAZOLAM [Concomitant]
     Dosage: 0.5 MG, UNK
  8. ATENOLOL [Concomitant]
     Dosage: 25 MG, UNK

REACTIONS (6)
  - Anaemia [Unknown]
  - Weight decreased [Unknown]
  - Anal pruritus [Unknown]
  - Vomiting [Unknown]
  - Nausea [Unknown]
  - Dysgeusia [Not Recovered/Not Resolved]
